FAERS Safety Report 5091873-0 (Version None)
Quarter: 2006Q3

REPORT INFORMATION
  Report Type: 
  Country: None (occurrence: None)
  Receive Date: 20060829
  Receipt Date: 20060731
  Transmission Date: 20061208
  Serious: No
  Sender: FDA-Public Use
  Company Number: US-BRISTOL-MYERS SQUIBB COMPANY-13460043

PATIENT
  Age: 69 Year
  Sex: Female
  Weight: 80 kg

DRUGS (8)
  1. ERBITUX [Suspect]
     Indication: COLON CANCER
     Route: 042
     Dates: start: 20060727, end: 20060727
  2. CPT-11 [Concomitant]
     Dates: start: 20060619
  3. ATENOLOL [Concomitant]
  4. POTASSIUM [Concomitant]
  5. HYDROCHLOROTHIAZIDE [Concomitant]
  6. COUMADIN [Concomitant]
  7. MULTI-VITAMIN [Concomitant]
  8. DIPHENHYDRAMINE [Concomitant]
     Route: 048
     Dates: start: 20060727, end: 20060727

REACTIONS (1)
  - ACCIDENTAL EXPOSURE [None]
